FAERS Safety Report 24155501 (Version 2)
Quarter: 2024Q3

REPORT INFORMATION
  Report Type: Spontaneous
  Country: US (occurrence: US)
  Receive Date: 20240731
  Receipt Date: 20240809
  Transmission Date: 20241016
  Serious: No
  Sender: ABBVIE
  Company Number: US-ABBVIE-5809203

PATIENT
  Sex: Female
  Weight: 48 kg

DRUGS (3)
  1. REFRESH CELLUVISC [Suspect]
     Active Substance: CARBOXYMETHYLCELLULOSE SODIUM
     Indication: Dry eye
     Dosage: TOTAL 3 TIMES AND THAT THE FIRST TIME WAS AT NIGHT 2 USES WERE DURING THE DAY
     Route: 047
     Dates: start: 202406, end: 202406
  2. RESTASIS [Concomitant]
     Active Substance: CYCLOSPORINE
     Indication: Dry eye
  3. REFRESH CLASSIC [Concomitant]
     Active Substance: POLYVINYL ALCOHOL\POVIDONE
     Indication: Dry eye
     Dosage: EYE DROPS

REACTIONS (8)
  - Feeling abnormal [Unknown]
  - Eye infection [Recovered/Resolved]
  - Intraocular pressure increased [Recovered/Resolved]
  - Eye irritation [Unknown]
  - Ocular hyperaemia [Recovered/Resolved]
  - Dry eye [Unknown]
  - Eye discharge [Recovered/Resolved]
  - Hypersensitivity [Unknown]

NARRATIVE: CASE EVENT DATE: 20240101
